FAERS Safety Report 6718370-8 (Version None)
Quarter: 2010Q2

REPORT INFORMATION
  Report Type: 
  Country: None (occurrence: None)
  Receive Date: 20100505
  Receipt Date: 20100427
  Transmission Date: 20101027
  Serious: Yes (Death)
  Sender: FDA-Public Use
  Company Number: JHP201000144

PATIENT
  Age: 1 Year
  Sex: Female

DRUGS (1)
  1. BREVITAL SODIUM INJ [Suspect]

REACTIONS (1)
  - SHOCK [None]
